FAERS Safety Report 10535905 (Version 1)
Quarter: 2014Q4

REPORT INFORMATION
  Report Type: Spontaneous
  Country: US (occurrence: US)
  Receive Date: 20141022
  Receipt Date: 20141022
  Transmission Date: 20150529
  Serious: Yes (Other)
  Sender: FDA-Public Use
  Company Number: US-RECKITT BENCKISER PHARMACEUTICAL, INC-RB-60747-2013

PATIENT

DRUGS (6)
  1. SUBOXONE [Suspect]
     Active Substance: BUPRENORPHINE HYDROCHLORIDE\NALOXONE HYDROCHLORIDE
     Indication: DRUG DEPENDENCE
     Dosage: SUBOXONE FILM; THE PATIENT WAS CUTTING THE FILM TO ACHIEVE DOSING
     Route: 060
     Dates: start: 2011, end: 201311
  2. VIIBRYD [Suspect]
     Active Substance: VILAZODONE HYDROCHLORIDE
     Indication: ANXIETY
     Dosage: DOSING DETAILS UNKNOWN
     Route: 048
     Dates: end: 201311
  3. VICODIN [Suspect]
     Active Substance: ACETAMINOPHEN\HYDROCODONE BITARTRATE
     Indication: SUBSTANCE USE
     Dosage: DOSING DETAILS UNKNOWN
     Route: 048
     Dates: start: 201311, end: 201311
  4. GILENYA [Suspect]
     Active Substance: FINGOLIMOD HYDROCHLORIDE
     Indication: MULTIPLE SCLEROSIS
     Dosage: DOSING DETAILS UNKNOWN
     Route: 048
     Dates: end: 201311
  5. SUBOXONE [Suspect]
     Active Substance: BUPRENORPHINE HYDROCHLORIDE\NALOXONE HYDROCHLORIDE
     Dosage: SUBOXONE FILM; THE PATIENT TOOK MORE THAN PRESCRIBED (20 MG); UNKNOWN FURTHER DOSE
     Route: 060
     Dates: start: 20131111
  6. PERCOCET [Suspect]
     Active Substance: ACETAMINOPHEN\OXYCODONE HYDROCHLORIDE
     Indication: SUBSTANCE USE
     Dosage: DOSING DETAILS UNKNOWN
     Route: 048
     Dates: start: 201311, end: 201311

REACTIONS (7)
  - Hallucination, auditory [Not Recovered/Not Resolved]
  - Wrong technique in drug usage process [Not Recovered/Not Resolved]
  - Muscle twitching [Not Recovered/Not Resolved]
  - Extra dose administered [Unknown]
  - Insomnia [Not Recovered/Not Resolved]
  - Speech disorder [Not Recovered/Not Resolved]
  - Drug dependence [Recovered/Resolved]

NARRATIVE: CASE EVENT DATE: 2011
